FAERS Safety Report 8094194-7 (Version None)
Quarter: 2012Q1

REPORT INFORMATION
  Report Type: 
  Country: None (occurrence: None)
  Receive Date: 20120130
  Receipt Date: 20120130
  Transmission Date: 20120608
  Serious: Yes (Other)
  Sender: FDA-Public Use
  Company Number: None

PATIENT
  Age: 34 Year
  Sex: Female
  Weight: 58.967 kg

DRUGS (1)
  1. REMICADE [Suspect]
     Indication: CROHN'S DISEASE
     Dosage: 5MG/KG
     Route: 041
     Dates: start: 20110411, end: 20120103

REACTIONS (7)
  - BURNING SENSATION [None]
  - FINE MOTOR DELAY [None]
  - HYPOAESTHESIA [None]
  - SENSATION OF PRESSURE [None]
  - VISION BLURRED [None]
  - HEADACHE [None]
  - DIZZINESS [None]
